FAERS Safety Report 8381188-7 (Version None)
Quarter: 2012Q2

REPORT INFORMATION
  Report Type: 
  Country: None (occurrence: None)
  Receive Date: 20120522
  Receipt Date: 20120508
  Transmission Date: 20120825
  Serious: Yes (Hospitalization)
  Sender: FDA-Public Use
  Company Number: CIP-2012-00141

PATIENT
  Age: 18 Year
  Sex: Male

DRUGS (4)
  1. CARBOPLATIN [Suspect]
     Indication: LUNG ADENOCARCINOMA
     Dosage: AUC 6; 530 MG/BODY (MONTHLY), AUC 3; 350 MG/BODY (BI-WEEKLY)
  2. PACLITAXEL [Suspect]
     Indication: LUNG ADENOCARCINOMA
     Dosage: 200 MG/M=360 MG/BODY (MONTHLY), 90 MG/M2=162 MG/BODY (BI-WEEKLY)
  3. OK-432 (PICIBANIL) [Concomitant]
  4. CISPLATIN [Concomitant]

REACTIONS (2)
  - PNEUMOTHORAX [None]
  - BRONCHOPLEURAL FISTULA [None]
